FAERS Safety Report 13665734 (Version 1)
Quarter: 2017Q2

REPORT INFORMATION
  Report Type: Spontaneous
  Country: US (occurrence: US)
  Receive Date: 20170619
  Receipt Date: 20170619
  Transmission Date: 20170830
  Serious: Yes (Other)
  Sender: FDA-Public Use
  Company Number: US-SA-2017SA106774

PATIENT
  Sex: Female

DRUGS (5)
  1. METFORMIN [Concomitant]
     Active Substance: METFORMIN HYDROCHLORIDE
  2. LANTUS [Suspect]
     Active Substance: INSULIN GLARGINE
     Indication: DIABETES MELLITUS
     Route: 051
     Dates: start: 2015
  3. LANTUS [Suspect]
     Active Substance: INSULIN GLARGINE
     Indication: DIABETES MELLITUS
     Dosage: DOSE:40 UNIT(S)
     Route: 051
     Dates: start: 20170608, end: 20170608
  4. INVOKANA [Concomitant]
     Active Substance: CANAGLIFLOZIN
  5. NOVOLOG [Suspect]
     Active Substance: INSULIN ASPART
     Route: 065

REACTIONS (10)
  - Mental impairment [Unknown]
  - Road traffic accident [Unknown]
  - Memory impairment [Unknown]
  - Depression [Unknown]
  - Intentional product misuse [Unknown]
  - Agitation [Unknown]
  - Feeling abnormal [Unknown]
  - Somnolence [Unknown]
  - Glycosylated haemoglobin increased [Unknown]
  - Dizziness [Unknown]

NARRATIVE: CASE EVENT DATE: 2015
